FAERS Safety Report 5358328-7 (Version None)
Quarter: 2007Q2

REPORT INFORMATION
  Report Type: 
  Country: None (occurrence: None)
  Receive Date: 20070614
  Receipt Date: 20070614
  Transmission Date: 20071010
  Serious: Yes (Hospitalization)
  Sender: FDA-Public Use
  Company Number: None

PATIENT
  Sex: Male
  Weight: 100 kg

DRUGS (5)
  1. SUNITINIB [Suspect]
     Indication: RENAL CANCER METASTATIC
     Dosage: 50 MG QDX28 DAYS PO
     Route: 048
     Dates: start: 20070530, end: 20070611
  2. ATENOLOL [Concomitant]
  3. COMPAZINE [Concomitant]
  4. ZOFRAN [Concomitant]
  5. ALLEGRA [Concomitant]

REACTIONS (4)
  - HAEMOPTYSIS [None]
  - HILAR LYMPHADENOPATHY [None]
  - LYMPHADENOPATHY MEDIASTINAL [None]
  - METASTASES TO PERIPHERAL VASCULAR SYSTEM [None]
